FAERS Safety Report 8486636-X (Version None)
Quarter: 2012Q3

REPORT INFORMATION
  Report Type: 
  Country: None (occurrence: None)
  Receive Date: 20120703
  Receipt Date: 20120625
  Transmission Date: 20120928
  Serious: Yes (Other)
  Sender: FDA-Public Use
  Company Number: US-ABBOTT-12P-163-0949762-00

PATIENT
  Sex: Male
  Weight: 70.37 kg

DRUGS (2)
  1. LEVOXYL [Suspect]
     Indication: HYPOTHYROIDISM
     Route: 048
     Dates: end: 20120607
  2. LEVOTHYROXINE SODIUM [Suspect]
     Indication: HYPOTHYROIDISM
     Dosage: DAILY
     Dates: start: 20120608

REACTIONS (2)
  - THINKING ABNORMAL [None]
  - THYROID FUNCTION TEST ABNORMAL [None]
